FAERS Safety Report 13998130 (Version 2)
Quarter: 2018Q4

REPORT INFORMATION
  Report Type: Spontaneous
  Country: US (occurrence: US)
  Receive Date: 20170921
  Receipt Date: 20181026
  Transmission Date: 20190204
  Serious: Yes (Other)
  Sender: FDA-Public Use
  Company Number: US-ACTELION-A-NJ2017-159595

PATIENT
  Age: 10 Month
  Sex: Female

DRUGS (10)
  1. TRACLEER [Suspect]
     Active Substance: BOSENTAN
     Dosage: 10 MG BID
     Route: 048
     Dates: start: 20171220
  2. TREPROSTINIL. [Concomitant]
     Active Substance: TREPROSTINIL
     Dosage: TITRATED TO EFFECT
     Route: 058
     Dates: start: 20171116
  3. TRACLEER [Suspect]
     Active Substance: BOSENTAN
     Dosage: 8.5 MG, BID SOLN (1 MG/KG/DOSE)
     Route: 048
     Dates: start: 20170819, end: 20170821
  4. PHENOBARBITAL. [Concomitant]
     Active Substance: PHENOBARBITAL
     Dosage: 15 MG, BID
     Route: 048
     Dates: start: 20171216, end: 201801
  5. ERYTHROMYCIN ETHYL SUCCINATE [Concomitant]
     Active Substance: ERYTHROMYCIN ETHYLSUCCINATE
     Dosage: 32.4 MG, QID
     Route: 048
     Dates: start: 20171116
  6. METHADONE [Concomitant]
     Active Substance: METHADONE HYDROCHLORIDE
     Dosage: 13 MG, QID
     Route: 048
     Dates: start: 20180108
  7. TADALAFIL. [Concomitant]
     Active Substance: TADALAFIL
     Dosage: 10 MG, QD
     Route: 048
     Dates: start: 20170709
  8. TRACLEER [Suspect]
     Active Substance: BOSENTAN
     Indication: PULMONARY ARTERIAL HYPERTENSION
     Dosage: 7.5 MG, BID SOLN (1 MG/KG/DOSE)
     Route: 048
     Dates: start: 20170706, end: 20170815
  9. RANITIDINE. [Concomitant]
     Active Substance: RANITIDINE
     Dosage: 30 MG, BID
     Route: 048
     Dates: start: 20180102
  10. BACLOFEN. [Concomitant]
     Active Substance: BACLOFEN
     Dosage: 8.5 MG, TID
     Route: 048
     Dates: start: 20171220

REACTIONS (7)
  - Blood alkaline phosphatase increased [Recovered/Resolved]
  - Alanine aminotransferase [Recovered/Resolved]
  - Gastrointestinal haemorrhage [Recovering/Resolving]
  - Drug intolerance [Recovering/Resolving]
  - Bilirubin conjugated increased [Recovering/Resolving]
  - Liver function test increased [Recovered/Resolved]
  - Aspartate aminotransferase increased [Recovered/Resolved]

NARRATIVE: CASE EVENT DATE: 20170724
